FAERS Safety Report 9229071 (Version 6)
Quarter: 2013Q4

REPORT INFORMATION
  Report Type: Report from Study
  Country: BE (occurrence: BE)
  Receive Date: 20130412
  Receipt Date: 20131113
  Transmission Date: 20140711
  Serious: Yes (Hospitalization)
  Sender: FDA-Public Use
  Company Number: BE-PFIZER INC-2013117295

PATIENT
  Age: 66 Year
  Sex: Female

DRUGS (86)
  1. FLUOROURACIL [Suspect]
     Indication: METASTATIC GASTRIC CANCER
     Dosage: 5811 MG (800 MG/M2/DAY), (1 IN 21 D)
     Route: 041
     Dates: start: 20120305, end: 20120310
  2. FLUOROURACIL [Suspect]
     Dosage: 4272 MG, (1 IN 21 D)
     Route: 041
     Dates: start: 20120326, end: 20120331
  3. CISPLATIN [Suspect]
     Indication: METASTATIC GASTRIC CANCER
     Dosage: 116 MG (80 MG/M2), (1 IN 21 D)
     Route: 041
     Dates: start: 20120305, end: 20120305
  4. CISPLATIN [Suspect]
     Dosage: 85 MG, (1 IN 21 D)
     Route: 041
     Dates: start: 20120326, end: 20120326
  5. ATACAND [Concomitant]
     Indication: HYPERTENSION
     Dosage: UNK
     Dates: start: 20050525
  6. ATACAND [Concomitant]
     Dosage: UNK
     Dates: start: 20120402
  7. ORTHO-GYNEST [Concomitant]
     Indication: POSTMENOPAUSE
     Dosage: UNK
     Dates: start: 20110307
  8. ORTHO-GYNEST [Concomitant]
     Dosage: UNK
     Dates: start: 20120402
  9. OLAMINE [Concomitant]
     Indication: PROPHYLAXIS
     Dosage: UNK
     Dates: start: 20101208
  10. NEUROBION [Concomitant]
     Indication: GASTRECTOMY
     Dosage: UNK
     Dates: start: 20100330
  11. BAREXAL [Concomitant]
     Indication: DIARRHOEA
     Dosage: 1 AS REQUIRED
     Dates: start: 20120305
  12. BAREXAL [Concomitant]
     Dosage: UNK
     Dates: start: 20120411
  13. IMODIUM [Concomitant]
     Indication: DIARRHOEA
     Dosage: 1 DF, AS NEEDED
     Dates: start: 20120312, end: 20120313
  14. IMODIUM [Concomitant]
     Dosage: UNK (STOPPED)
     Dates: start: 20120402
  15. BICARBONATE BUCCAL [Concomitant]
     Indication: STOMATITIS
     Dosage: 1 DF, AS NEEDED
     Route: 002
     Dates: start: 20120313
  16. BICARBONATE BUCCAL [Concomitant]
     Dosage: UNK
     Dates: start: 20120402
  17. ZANTAC [Concomitant]
     Indication: DYSPEPSIA
     Dosage: UNK
     Dates: start: 20120312, end: 20120312
  18. ZANTAC [Concomitant]
     Dosage: UNK
     Dates: start: 20120601, end: 20120601
  19. CONTRAMAL [Concomitant]
     Indication: ODYNOPHAGIA
     Dosage: UNK
     Dates: start: 20120313, end: 20120314
  20. MOTILIUM [Concomitant]
     Indication: NAUSEA
     Dosage: 1 DF, AS NEEDED
     Dates: start: 20120311
  21. MOTILIUM [Concomitant]
     Dosage: UNK
     Dates: start: 20120402
  22. LITICAN [Concomitant]
     Indication: NAUSEA
     Dosage: 1 DF, AS NEEDED
     Dates: start: 20120311
  23. LITICAN [Concomitant]
     Dosage: AS REQUIRED
     Dates: start: 20120402
  24. SYNGEL [Concomitant]
     Indication: PROPHYLAXIS
     Dosage: UNK
     Dates: start: 20120315, end: 20120402
  25. SYNGEL [Concomitant]
     Dosage: UNK
     Dates: start: 20120411, end: 20120413
  26. MS-CONTIN [Concomitant]
     Indication: ODYNOPHAGIA
     Dosage: 1 DF, AS NEEDED
     Dates: start: 20120316
  27. MS-CONTIN [Concomitant]
     Dosage: UNK
     Dates: start: 20120402
  28. MS DIRECT [Concomitant]
     Indication: ODYNOPHAGIA
     Dosage: UNK
     Dates: start: 20120313
  29. MS DIRECT [Concomitant]
     Dosage: 1 DF, AS NEEDED
     Dates: start: 20120315
  30. MS DIRECT [Concomitant]
     Dosage: UNK
     Dates: start: 20120402
  31. PRESERVISION [Concomitant]
     Indication: PROPHYLAXIS
     Dosage: UNK
     Dates: start: 20101001
  32. SOFTENE [Concomitant]
     Indication: CONSTIPATION PROPHYLAXIS
     Dosage: 1 DF, AS NEEDED
     Dates: start: 20120315
  33. MOVICOL [Concomitant]
     Indication: CONSTIPATION PROPHYLAXIS
     Dosage: 1 DF, AS NEEDED
     Dates: start: 20120313
  34. MAGNESIUM SULFATE [Concomitant]
     Indication: HYPOMAGNESAEMIA
     Dosage: UNK
     Dates: start: 20120313, end: 20120327
  35. DIFLUCAN [Concomitant]
     Indication: PROPHYLAXIS
     Dosage: UNK
     Dates: start: 20120312, end: 20120322
  36. CLEXANE [Concomitant]
     Indication: PULMONARY EMBOLISM
     Dosage: UNK
     Dates: start: 20120312, end: 20120313
  37. TRADONAL [Concomitant]
     Indication: ODYNOPHAGIA
     Dosage: UNK
     Dates: start: 20120312, end: 20120315
  38. ENTEROL [Concomitant]
     Indication: DIARRHOEA
     Dosage: 1 DF, AS NEEDED
     Dates: start: 2012
  39. EMEND [Concomitant]
     Indication: PROPHYLAXIS OF NAUSEA AND VOMITING
     Dosage: UNK
     Dates: start: 20120305, end: 20120602
  40. ONDANSETRON [Concomitant]
     Indication: PROPHYLAXIS OF NAUSEA AND VOMITING
     Dosage: UNK
     Dates: start: 20120305, end: 20120531
  41. DEXAMETHASONE [Concomitant]
     Indication: INFLAMMATION
     Dosage: UNK
     Dates: start: 20120305, end: 20120531
  42. MEDROL [Concomitant]
     Indication: INFLAMMATION
     Dosage: UNK
     Dates: start: 20120305
  43. MEDROL [Concomitant]
     Indication: PROPHYLAXIS OF NAUSEA AND VOMITING
  44. LIQUID PHYSIOLOGIC [Concomitant]
     Indication: DEHYDRATION
     Dosage: UNK
     Dates: start: 20120402, end: 20120405
  45. LIQUID PHYSIOLOGIC [Concomitant]
     Indication: FLUID REPLACEMENT
     Dosage: UNK
     Dates: start: 20120411, end: 20120413
  46. LIQUID PHYSIOLOGIC [Concomitant]
     Dosage: UNK
     Dates: start: 20120531, end: 20120601
  47. PERFUSALGAM [Concomitant]
     Indication: DYSPEPSIA
     Dosage: UNK
     Route: 042
     Dates: start: 20120312, end: 20120312
  48. PERFUSALGAM [Concomitant]
     Indication: ABDOMINAL PAIN UPPER
     Dosage: UNK
     Dates: start: 20120525, end: 20120525
  49. PERFUSALGAM [Concomitant]
     Indication: PYREXIA
  50. SODIUM CHLORIDE [Concomitant]
     Indication: DEHYDRATION
     Dosage: UNK
     Dates: start: 20120312, end: 20120316
  51. SODIUM CHLORIDE [Concomitant]
     Indication: HYPONATRAEMIA
     Dosage: UNK
     Dates: start: 20120402, end: 20120405
  52. PRIMPERAN [Concomitant]
     Indication: NAUSEA
     Dosage: UNK
     Dates: start: 20120316
  53. EMCONCOR [Concomitant]
     Indication: HYPERTENSION
     Dosage: UNK
     Dates: start: 20120322, end: 20120328
  54. DAFALGAN [Concomitant]
     Indication: PYREXIA
     Dosage: UNK
     Dates: start: 20120328
  55. DAFALGAN [Concomitant]
     Indication: ABDOMINAL PAIN UPPER
     Dosage: UNK
     Dates: start: 20120402
  56. DAFALGAN [Concomitant]
     Indication: HEADACHE
  57. XYLOCAINE [Concomitant]
     Indication: STOMATITIS
     Dosage: UNK
     Route: 048
     Dates: start: 20120402, end: 20120407
  58. NEXIUM [Concomitant]
     Indication: ODYNOPHAGIA
     Dosage: UNK
     Dates: start: 20120402, end: 20120405
  59. PANTOMED [Concomitant]
     Indication: DYSPEPSIA
     Dosage: 1 DF, AS NEEDED
     Dates: start: 20120406
  60. PANTOMED [Concomitant]
     Indication: NAUSEA
  61. TAZOCIN [Concomitant]
     Indication: NEUTROPENIA
     Dosage: UNK
     Dates: start: 20120318, end: 20120326
  62. TAZOCIN [Concomitant]
     Indication: FEBRILE NEUTROPENIA
     Dosage: UNK
     Dates: start: 20120411, end: 20120413
  63. PARACETAMOL [Concomitant]
     Indication: STOMATITIS
     Dosage: UNK
     Dates: start: 20120314, end: 20120316
  64. PARACETAMOL [Concomitant]
     Dosage: UNK
     Dates: start: 20120402, end: 20120407
  65. FRAXIPARINE [Concomitant]
     Indication: THROMBOSIS PROPHYLAXIS
     Dosage: UNK
     Dates: start: 20120405, end: 20120406
  66. FRAXIPARINE [Concomitant]
     Dosage: UNK
     Dates: start: 20120412, end: 20120413
  67. FRAXIPARINE [Concomitant]
     Dosage: UNK
     Dates: start: 20120509, end: 20120511
  68. FRAXIPARINE [Concomitant]
     Dosage: UNK
     Dates: start: 20120531, end: 20120601
  69. AVELOX [Concomitant]
     Indication: COUGH
     Dosage: UNK
     Dates: start: 20120501, end: 20120507
  70. FURADANTIN [Concomitant]
     Indication: POLLAKIURIA
     Dosage: UNK
     Dates: start: 20120507, end: 20120509
  71. FURADANTIN [Concomitant]
     Indication: DYSURIA
  72. ARANESP [Concomitant]
     Indication: ANAEMIA
     Dosage: UNK
     Dates: start: 20120510, end: 20120510
  73. ARANESP [Concomitant]
     Dosage: UNK
     Dates: start: 20120604, end: 20120604
  74. CEFUROXIME [Concomitant]
     Indication: BRONCHITIS
     Dosage: UNK
     Dates: start: 20120514, end: 20120531
  75. ERYTHROPOIETIN [Concomitant]
     Indication: APLASTIC ANAEMIA
     Dosage: UNK
     Dates: start: 20120531, end: 20120531
  76. ERYTHROPOIETIN [Concomitant]
     Indication: ANAEMIA PROPHYLAXIS
     Dosage: UNK
     Dates: start: 20120620, end: 20120620
  77. ERYTHROPOIETIN [Concomitant]
     Indication: ANAEMIA
     Dosage: UNK
     Dates: start: 20120703, end: 20120703
  78. ZINNAT [Concomitant]
     Indication: BRONCHITIS
     Dosage: UNK
     Dates: start: 20120524, end: 20120603
  79. NYSTATINE [Concomitant]
     Indication: STOMATITIS
     Dosage: UNK, AS REQUIRED (STOPPED)
     Dates: start: 20130509
  80. POTASSIUM CHLORIDE [Concomitant]
     Indication: HYPOKALAEMIA
     Dosage: 50 MILLIEQUIVALENTS
     Route: 042
     Dates: start: 20120402, end: 20120404
  81. POTASSIUM CHLORIDE [Concomitant]
     Dosage: 50 MILLIEQUIVALENTS
     Route: 042
     Dates: start: 20120411, end: 20120601
  82. CHLOROPOTASSURIL [Concomitant]
     Indication: HYPOKALAEMIA
     Dosage: UNK
     Dates: start: 20120509, end: 20120511
  83. AMLOR [Concomitant]
     Indication: HYPERTENSION
     Dosage: UNK
     Dates: start: 20120313, end: 20120321
  84. KALEORID [Concomitant]
     Indication: HYPOKALAEMIA
     Dosage: UNK
     Dates: start: 20120317, end: 20120323
  85. NEXIAM [Concomitant]
     Indication: ODYNOPHAGIA
     Dosage: UNK
     Dates: start: 20120402, end: 20120405
  86. ISOSOURCE ENERGY [Concomitant]
     Indication: DECREASED APPETITE
     Dosage: UNK
     Dates: start: 20120327, end: 20120327

REACTIONS (9)
  - Hypokalaemia [Recovered/Resolved]
  - Decreased appetite [Not Recovered/Not Resolved]
  - Febrile neutropenia [Recovered/Resolved]
  - Mucosal inflammation [Recovered/Resolved]
  - Dehydration [Recovered/Resolved]
  - Diarrhoea [Unknown]
  - Eating disorder [Unknown]
  - Abdominal pain upper [Unknown]
  - Nausea [Unknown]
